FAERS Safety Report 5580647-X (Version None)
Quarter: 2008Q1

REPORT INFORMATION
  Report Type: 
  Country: None (occurrence: None)
  Receive Date: 20080103
  Receipt Date: 20071222
  Transmission Date: 20080703
  Serious: Yes (Other)
  Sender: FDA-Public Use
  Company Number: US-PFIZER INC-2008000085

PATIENT
  Sex: Male
  Weight: 137.9 kg

DRUGS (6)
  1. CHANTIX [Suspect]
     Indication: SMOKING CESSATION THERAPY
  2. OXYCODONE HCL [Concomitant]
  3. NORCO [Concomitant]
  4. NEURONTIN [Concomitant]
  5. DRUG, UNSPECIFIED [Concomitant]
  6. ZOLOFT [Concomitant]

REACTIONS (1)
  - MEMORY IMPAIRMENT [None]
